FAERS Safety Report 11121976 (Version 1)
Quarter: 2015Q2

REPORT INFORMATION
  Report Type: Spontaneous
  Country: US (occurrence: US)
  Receive Date: 20150519
  Receipt Date: 20150519
  Transmission Date: 20150821
  Serious: No
  Sender: FDA-Public Use
  Company Number: US-TARO-2015TAR00131

PATIENT
  Age: 78 Year
  Sex: Female

DRUGS (1)
  1. NYSTATIN + TRIAMCINOLONE ACETONIDE OINTMENT [Suspect]
     Active Substance: NYSTATIN\TRIAMCINOLONE ACETONIDE
     Dosage: UNK UNK, ONCE
     Route: 061
     Dates: start: 20150105, end: 20150105

REACTIONS (2)
  - Pain [Not Recovered/Not Resolved]
  - Feeling abnormal [Unknown]

NARRATIVE: CASE EVENT DATE: 20150105
